FAERS Safety Report 15917895 (Version 1)
Quarter: 2019Q1

REPORT INFORMATION
  Report Type: Spontaneous
  Country: US (occurrence: US)
  Receive Date: 20190205
  Receipt Date: 20190205
  Transmission Date: 20190417
  Serious: No
  Sender: FDA-Public Use
  Company Number: US-PFIZER INC-2019052151

PATIENT
  Age: 24 Year
  Sex: Female

DRUGS (3)
  1. GENOTROPIN MQ [Suspect]
     Active Substance: SOMATROPIN
     Indication: METABOLIC DISORDER
  2. GENOTROPIN MQ [Suspect]
     Active Substance: SOMATROPIN
     Indication: CONGENITAL ANOMALY
  3. GENOTROPIN MQ [Suspect]
     Active Substance: SOMATROPIN
     Indication: ANEURYSMAL BONE CYST
     Dosage: 0.4 MG, DAILY

REACTIONS (3)
  - Blood cholesterol increased [Unknown]
  - Product use in unapproved indication [Unknown]
  - Low density lipoprotein increased [Unknown]

NARRATIVE: CASE EVENT DATE: 20181203
